FAERS Safety Report 4761261-2 (Version None)
Quarter: 2005Q3

REPORT INFORMATION
  Report Type: 
  Country: None (occurrence: None)
  Receive Date: 20050906
  Receipt Date: 20050812
  Transmission Date: 20060218
  Serious: Yes (Death, Other)
  Sender: FDA-Public Use
  Company Number: PHEH2005US08987

PATIENT
  Age: 65 Year
  Sex: Male

DRUGS (5)
  1. ZOMETA [Suspect]
     Indication: MULTIPLE MYELOMA
     Dosage: 4 UNK, QMO
     Dates: start: 20020103, end: 20040822
  2. DECADRON                                /CAN/ [Concomitant]
     Dosage: UNK, UNK
     Dates: start: 20050608, end: 20050623
  3. VINCRISTINE + ADRIAMYCIN + DEXAMETHASONE [Concomitant]
     Dates: start: 20000817, end: 20001121
  4. PREDNISONE [Concomitant]
     Dosage: 40MG QD D1-7
     Dates: start: 20010223, end: 20020205
  5. VELCADE [Suspect]
     Dates: start: 20050608, end: 20050623

REACTIONS (6)
  - ASEPTIC NECROSIS BONE [None]
  - BONE DISORDER [None]
  - BONE LESION [None]
  - DENTAL TREATMENT [None]
  - MALIGNANT NEOPLASM PROGRESSION [None]
  - PAIN IN JAW [None]
